FAERS Safety Report 15383328 (Version 10)
Quarter: 2019Q2

REPORT INFORMATION
  Report Type: Report from Study
  Country: US (occurrence: US)
  Receive Date: 20180913
  Receipt Date: 20190626
  Transmission Date: 20190711
  Serious: Yes (Hospitalization, Other)
  Sender: FDA-Public Use
  Company Number: US-ACTELION-A-NJ2018-177771

PATIENT
  Age: 66 Year
  Sex: Female
  Weight: 128.35 kg

DRUGS (7)
  1. VELETRI [Suspect]
     Active Substance: EPOPROSTENOL
     Indication: PULMONARY HYPERTENSION
     Dosage: 22.5 NG/KG, PER MIN
     Route: 042
  2. VELETRI [Suspect]
     Active Substance: EPOPROSTENOL
     Dosage: 30.8 NG/KG, PER MIN
     Route: 042
  3. LASIX [Suspect]
     Active Substance: FUROSEMIDE
     Indication: FLUID OVERLOAD
     Dosage: 80 MG, UNK
     Route: 042
  4. VELETRI [Suspect]
     Active Substance: EPOPROSTENOL
     Dosage: 6 NG/KG, PER MIN
     Route: 042
  5. VELETRI [Suspect]
     Active Substance: EPOPROSTENOL
     Dosage: 20 NG/KG, PER MIN
     Route: 042
  6. IMODIUM [Concomitant]
     Active Substance: LOPERAMIDE HYDROCHLORIDE
  7. VELETRI [Suspect]
     Active Substance: EPOPROSTENOL
     Dosage: 10.6 NG/KG, PER MIN
     Route: 042

REACTIONS (40)
  - Rash [Not Recovered/Not Resolved]
  - Blood pressure systolic decreased [Unknown]
  - Diarrhoea [Unknown]
  - Cardiac flutter [Unknown]
  - Vomiting [Not Recovered/Not Resolved]
  - Dyspnoea exertional [Not Recovered/Not Resolved]
  - Fluid overload [Recovered/Resolved with Sequelae]
  - Weight increased [Recovered/Resolved with Sequelae]
  - Acute kidney injury [Recovered/Resolved with Sequelae]
  - Oedema [Unknown]
  - Urine output decreased [Not Recovered/Not Resolved]
  - Thrombocytopenia [Not Recovered/Not Resolved]
  - Nasopharyngitis [Not Recovered/Not Resolved]
  - Urticaria [Unknown]
  - Catheter site pruritus [Unknown]
  - Retching [Not Recovered/Not Resolved]
  - Tremor [Not Recovered/Not Resolved]
  - Chills [Not Recovered/Not Resolved]
  - Headache [Unknown]
  - Nasal congestion [Not Recovered/Not Resolved]
  - Rash pruritic [Unknown]
  - Pulmonary hypertension [Unknown]
  - Catheter site discharge [Unknown]
  - Gastrooesophageal reflux disease [Unknown]
  - Nausea [Unknown]
  - Flushing [Unknown]
  - Hot flush [Not Recovered/Not Resolved]
  - Palpitations [Unknown]
  - Blood creatine increased [Recovered/Resolved]
  - Asthenia [Not Recovered/Not Resolved]
  - Catheter site rash [Unknown]
  - Fall [Unknown]
  - Contusion [Unknown]
  - Oedema peripheral [Unknown]
  - Sinusitis [Not Recovered/Not Resolved]
  - Feeling hot [Unknown]
  - Fluid retention [Unknown]
  - Renal failure [Unknown]
  - Catheter site irritation [Unknown]
  - Dyspnoea [Recovering/Resolving]

NARRATIVE: CASE EVENT DATE: 20180818
